FAERS Safety Report 8874711 (Version 2)
Quarter: 2012Q4

REPORT INFORMATION
  Report Type: 
  Country: JP (occurrence: JP)
  Receive Date: 20121023
  Receipt Date: 20121102
  Transmission Date: 20130627
  Serious: Yes (Hospitalization)
  Sender: FDA-Public Use
  Company Number: JP-BAYER-2012-107053

PATIENT
  Age: 61 Year
  Sex: Female

DRUGS (4)
  1. BAYASPIRIN [Suspect]
     Indication: CHRONIC ATRIAL FIBRILLATION
     Dosage: Daily dose 100 mg
     Route: 048
  2. BAYASPIRIN [Suspect]
     Indication: MYOCARDIAL ISCHAEMIA
     Route: 048
  3. WARFARIN POTASSIUM [Suspect]
     Indication: CHRONIC ATRIAL FIBRILLATION
     Dosage: Daily dose 3.5 mg
     Route: 048
  4. WARFARIN POTASSIUM [Suspect]
     Indication: MYOCARDIAL ISCHAEMIA
     Route: 048

REACTIONS (2)
  - Artery dissection [None]
  - Intra-abdominal haemorrhage [None]
